FAERS Safety Report 6929258-1 (Version None)
Quarter: 2010Q3

REPORT INFORMATION
  Report Type: 
  Country: None (occurrence: None)
  Receive Date: 20100812
  Receipt Date: 20100804
  Transmission Date: 20110219
  Serious: Yes (Other)
  Sender: FDA-Public Use
  Company Number: 103372-1

PATIENT
  Age: 60 Year
  Sex: Female

DRUGS (1)
  1. METHOTREXATE [Suspect]
     Dosage: 0.9MLSUBCUTANEOUSLY; ONCE WEEKLY
     Route: 058

REACTIONS (1)
  - MEDICATION ERROR [None]
